FAERS Safety Report 10537473 (Version 1)
Quarter: 2014Q4

REPORT INFORMATION
  Report Type: Spontaneous
  Country: US (occurrence: None)
  Receive Date: 20141022
  Receipt Date: 20141022
  Transmission Date: 20150529
  Serious: Yes (Hospitalization)
  Sender: FDA-Public Use
  Company Number: None

PATIENT
  Age: 71 Year
  Sex: Female
  Weight: 90.72 kg

DRUGS (1)
  1. GAMMAGARD [Suspect]
     Active Substance: HUMAN IMMUNOGLOBULIN G
     Indication: PERIPHERAL VENOUS DISEASE
     Route: 042
     Dates: start: 20141021, end: 20141021

REACTIONS (3)
  - Chest pain [None]
  - Chills [None]
  - Tremor [None]

NARRATIVE: CASE EVENT DATE: 20141021
